FAERS Safety Report 6985095-3 (Version None)
Quarter: 2010Q3

REPORT INFORMATION
  Report Type: 
  Country: None (occurrence: None)
  Receive Date: 20100915
  Receipt Date: 20100909
  Transmission Date: 20110219
  Serious: Yes (Life-Threatening)
  Sender: FDA-Public Use
  Company Number: PHHY2010NO59577

PATIENT
  Sex: Female

DRUGS (1)
  1. VOLTAREN [Suspect]
     Indication: PAIN
     Dosage: 50 MG, ONCE/SINGLE
     Route: 048
     Dates: start: 20100826, end: 20100826

REACTIONS (3)
  - ASTHMA [None]
  - RESPIRATORY FAILURE [None]
  - RESUSCITATION [None]
